FAERS Safety Report 7800742-1 (Version None)
Quarter: 2011Q4

REPORT INFORMATION
  Report Type: 
  Country: None (occurrence: None)
  Receive Date: 20111006
  Receipt Date: 20110926
  Transmission Date: 20120403
  Serious: Yes (Disabling, Other)
  Sender: FDA-Public Use
  Company Number: PHEH2010US00463

PATIENT
  Sex: Male
  Weight: 80.272 kg

DRUGS (11)
  1. ZOMETA [Suspect]
     Dosage: UNK UKN, QW4
     Dates: start: 20040106, end: 20070319
  2. ASPIRIN [Concomitant]
  3. BENEFIBER [Concomitant]
  4. CENTRUM SILVER [Concomitant]
  5. NEXAVAR [Concomitant]
  6. ZESTRIL [Concomitant]
  7. LIPITOR [Concomitant]
  8. WARFARIN SODIUM [Concomitant]
  9. ACTOS [Concomitant]
  10. ALLOPURINOL [Concomitant]
  11. SUTENT [Concomitant]

REACTIONS (12)
  - RENAL CANCER [None]
  - INJURY [None]
  - PAIN [None]
  - EXPOSED BONE IN JAW [None]
  - CELLULITIS [None]
  - OSTEONECROSIS OF JAW [None]
  - HYPERTENSION [None]
  - DIABETES MELLITUS [None]
  - PHYSICAL DISABILITY [None]
  - HAEMORRHAGE [None]
  - ANXIETY [None]
  - QUALITY OF LIFE DECREASED [None]
